FAERS Safety Report 11058830 (Version 7)
Quarter: 2022Q1

REPORT INFORMATION
  Report Type: Spontaneous
  Country: US (occurrence: US)
  Receive Date: 20150423
  Receipt Date: 20220311
  Transmission Date: 20220424
  Serious: Yes (Other)
  Sender: FDA-Public Use
  Company Number: US-PFIZER INC-2015129500

PATIENT
  Age: 73 Year
  Sex: Female

DRUGS (1)
  1. PREMARIN [Suspect]
     Active Substance: ESTROGENS, CONJUGATED
     Indication: Hot flush
     Dosage: 0.3 MG, 1X/DAY
     Dates: start: 2012

REACTIONS (7)
  - Hand fracture [Recovered/Resolved]
  - Diabetes mellitus [Unknown]
  - Colon cancer [Recovered/Resolved]
  - COVID-19 [Unknown]
  - Illness [Unknown]
  - Emotional distress [Unknown]
  - Frustration tolerance decreased [Unknown]

NARRATIVE: CASE EVENT DATE: 20140901
